FAERS Safety Report 5914341-X (Version None)
Quarter: 2008Q4

REPORT INFORMATION
  Report Type: 
  Country: None (occurrence: None)
  Receive Date: 20081009
  Receipt Date: 20080930
  Transmission Date: 20090506
  Serious: Yes (Other)
  Sender: FDA-Public Use
  Company Number: EC-PFIZER INC-2008083047

PATIENT
  Sex: Male

DRUGS (1)
  1. CARDURA [Suspect]
     Route: 048

REACTIONS (3)
  - ARRHYTHMIA [None]
  - EPISTAXIS [None]
  - SURGERY [None]
